FAERS Safety Report 6379175-3 (Version None)
Quarter: 2009Q3

REPORT INFORMATION
  Report Type: 
  Country: None (occurrence: None)
  Receive Date: 20090923
  Receipt Date: 20090923
  Transmission Date: 20100115
  Serious: Yes (Other)
  Sender: FDA-Public Use
  Company Number: None

PATIENT
  Age: 54 Month
  Sex: Female
  Weight: 73.0291 kg

DRUGS (1)
  1. TOPIRAMATE [Suspect]
     Indication: MIGRAINE
     Dosage: 25MG TO 100MG AT BEDTIME PO
     Route: 048
     Dates: start: 20090612, end: 20090815

REACTIONS (4)
  - CHAPPED LIPS [None]
  - LIP EXFOLIATION [None]
  - LIP SWELLING [None]
  - PRODUCT SUBSTITUTION ISSUE [None]
